FAERS Safety Report 5388363-4 (Version None)
Quarter: 2007Q3

REPORT INFORMATION
  Report Type: 
  Country: None (occurrence: None)
  Receive Date: 20070716
  Receipt Date: 20070705
  Transmission Date: 20080115
  Serious: Yes (Hospitalization)
  Sender: FDA-Public Use
  Company Number: CA-ELI_LILLY_AND_COMPANY-CA200707001784

PATIENT
  Age: 83 Year
  Sex: Female

DRUGS (13)
  1. FORTEO [Suspect]
     Indication: OSTEOPOROSIS
     Dosage: 20 UG, DAILY (1/D)
     Route: 058
     Dates: start: 20060703, end: 20070701
  2. FORTEO [Suspect]
     Dosage: 20 UG, DAILY (1/D)
     Route: 058
     Dates: start: 20070705
  3. PREDNISONE [Concomitant]
  4. AZATHIOPRINE [Concomitant]
  5. PARIET [Concomitant]
  6. DIDROCAL [Concomitant]
  7. RAMIPRIL [Concomitant]
  8. SYNTHROID [Concomitant]
  9. MUCOMYST [Concomitant]
  10. LORAZEPAM [Concomitant]
  11. MIACALCIN [Concomitant]
  12. CALCITONIN-SALMON [Concomitant]
  13. DIPHENHYDRAMINE HYDROCHLORIDE [Concomitant]
     Dosage: UNK, AS NEEDED

REACTIONS (3)
  - DIARRHOEA [None]
  - ELECTROLYTE DEPLETION [None]
  - VOMITING [None]
